FAERS Safety Report 25845188 (Version 1)
Quarter: 2025Q3

REPORT INFORMATION
  Report Type: Report from Study
  Country: CN (occurrence: CN)
  Receive Date: 20250925
  Receipt Date: 20250925
  Transmission Date: 20251021
  Serious: Yes (Other)
  Sender: ROCHE
  Company Number: CN-ROCHE-10000390295

PATIENT

DRUGS (3)
  1. BEVACIZUMAB [Suspect]
     Active Substance: BEVACIZUMAB
     Indication: Pleural mesothelioma malignant
     Route: 065
  2. CATEQUENTINIB [Suspect]
     Active Substance: CATEQUENTINIB
     Indication: Pleural mesothelioma malignant
     Route: 065
  3. RIVOCERANIB [Suspect]
     Active Substance: RIVOCERANIB
     Indication: Pleural mesothelioma malignant
     Route: 065

REACTIONS (8)
  - Diarrhoea [Unknown]
  - Hypertension [Unknown]
  - Anaemia [Unknown]
  - Lymphopenia [Unknown]
  - Neutropenia [Unknown]
  - Thrombocytopenia [Unknown]
  - Albuminuria [Unknown]
  - Leukopenia [Unknown]
